FAERS Safety Report 16139042 (Version 1)
Quarter: 2019Q1

REPORT INFORMATION
  Report Type: Spontaneous
  Country: US (occurrence: US)
  Receive Date: 20190226
  Receipt Date: 20190226
  Transmission Date: 20190418
  Serious: No
  Sender: FDA-Public Use
  Company Number: None

PATIENT
  Age: 65 Year
  Sex: Female
  Weight: 49.9 kg

DRUGS (7)
  1. FORTEO [Suspect]
     Active Substance: TERIPARATIDE
     Indication: INTERVERTEBRAL DISC DEGENERATION
  2. FORTEO [Suspect]
     Active Substance: TERIPARATIDE
     Indication: SPINAL OSTEOARTHRITIS
  3. FORTEO [Suspect]
     Active Substance: TERIPARATIDE
     Indication: ARTHROPATHY
  4. FORTEO [Suspect]
     Active Substance: TERIPARATIDE
     Indication: ARTHROPATHY
     Dosage: ?          OTHER STRENGTH:600MCG/2.4ML;?
     Route: 058
     Dates: start: 201712
  5. FORTEO [Suspect]
     Active Substance: TERIPARATIDE
     Indication: INTERVERTEBRAL DISC DEGENERATION
     Dosage: ?          OTHER STRENGTH:600MCG/2.4ML;?
     Route: 058
     Dates: start: 201712
  6. FORTEO [Suspect]
     Active Substance: TERIPARATIDE
     Indication: PAIN
     Dosage: ?          OTHER STRENGTH:600MCG/2.4ML;?
     Route: 058
     Dates: start: 201712
  7. FORTEO [Suspect]
     Active Substance: TERIPARATIDE
     Indication: SPINAL OSTEOARTHRITIS
     Dosage: ?          OTHER STRENGTH:600MCG/2.4ML;?
     Route: 058
     Dates: start: 201712

REACTIONS (2)
  - Pneumonia [None]
  - Dehydration [None]
